FAERS Safety Report 9233328 (Version 2)
Quarter: 2013Q2

REPORT INFORMATION
  Report Type: Spontaneous
  Country: US (occurrence: None)
  Receive Date: 20121031
  Receipt Date: 20130107
  Transmission Date: 20140414
  Serious: Yes (Other)
  Sender: FDA-Public Use
  Company Number: PHEH2012US013380

PATIENT
  Age: 60 Year
  Sex: Female
  Weight: 59 kg

DRUGS (7)
  1. GILENYA [Suspect]
     Indication: MULTIPLE SCLEROSIS
     Route: 048
     Dates: start: 20120703
  2. PHENTERMINE (PHENTERMINE) [Concomitant]
  3. LAMICTAL (LAMOTRIGINE) [Concomitant]
  4. BUSPAR (BUSPIRONE HYDROCHLORIDE) [Concomitant]
  5. CELEXA [Concomitant]
  6. LIPITOR (ATORVASTATIN CALCIUM) [Concomitant]
  7. PHENTERMINE (PHENTERMINE) [Concomitant]

REACTIONS (2)
  - Fatigue [None]
  - Oropharyngeal pain [None]
